FAERS Safety Report 9070557 (Version 1)
Quarter: 2013Q1

REPORT INFORMATION
  Report Type: Report from Study
  Country: US (occurrence: US)
  Receive Date: 20130129
  Receipt Date: 20130129
  Transmission Date: 20140127
  Serious: No
  Sender: FDA-Public Use
  Company Number: US-ABBOTT-12P-163-0919791-00

PATIENT
  Age: 55 Year
  Sex: Male

DRUGS (5)
  1. HUMIRA 40 MG/0.8 ML PEN [Suspect]
     Indication: CROHN^S DISEASE
     Dates: start: 20120224
  2. PREDNISONE [Concomitant]
     Indication: PRODUCT USED FOR UNKNOWN INDICATION
     Dosage: 5MG (1 TAB) IN AM; TAPERING DOSE
  3. LEXAPRO [Concomitant]
     Indication: ANXIETY
     Dosage: 1 TAB AT NIGHT
  4. NORCO [Concomitant]
     Indication: BACK PAIN
     Dosage: 1 TAB 2-3 TIMES DAILY PRN
  5. KLONOPIN [Concomitant]
     Indication: INSOMNIA
     Dosage: 1 TAB DAILY PRN

REACTIONS (1)
  - Sensory disturbance [Not Recovered/Not Resolved]
